FAERS Safety Report 6693256-6 (Version None)
Quarter: 2010Q2

REPORT INFORMATION
  Report Type: 
  Country: None (occurrence: None)
  Receive Date: 20100422
  Receipt Date: 20100414
  Transmission Date: 20101027
  Serious: Yes (Hospitalization, Other)
  Sender: FDA-Public Use
  Company Number: US-MERCK-0705USA02813

PATIENT
  Age: 63 Year
  Sex: Female

DRUGS (4)
  1. FOSAMAX [Suspect]
     Indication: OSTEOPOROSIS
     Route: 048
     Dates: start: 19991109, end: 19991122
  2. FOSAMAX [Suspect]
     Route: 065
     Dates: start: 20000110
  3. FOSAMAX [Suspect]
     Route: 048
     Dates: start: 19990801, end: 20000110
  4. CALCIUM (UNSPECIFIED) [Concomitant]
     Route: 065
     Dates: start: 19991109

REACTIONS (14)
  - ARTHRITIS [None]
  - ARTHROPATHY [None]
  - BONE DENSITY DECREASED [None]
  - DENTAL CARIES [None]
  - FIBROCYSTIC BREAST DISEASE [None]
  - GINGIVAL ULCERATION [None]
  - MENOPAUSE [None]
  - ORAL MUCOSAL ERYTHEMA [None]
  - OSTEOMYELITIS [None]
  - OSTEONECROSIS [None]
  - PAIN IN EXTREMITY [None]
  - TEMPOROMANDIBULAR JOINT SYNDROME [None]
  - TOOTH ABSCESS [None]
  - WEIGHT DECREASED [None]
